FAERS Safety Report 7528157-4 (Version None)
Quarter: 2011Q2

REPORT INFORMATION
  Report Type: 
  Country: None (occurrence: None)
  Receive Date: 20110607
  Receipt Date: 20100511
  Transmission Date: 20111010
  Serious: No
  Sender: FDA-Public Use
  Company Number: US-ASTRAZENECA-2010SE21408

PATIENT
  Age: 59 Year
  Sex: Male
  Weight: 69.4 kg

DRUGS (3)
  1. PRILOSEC [Suspect]
     Indication: GASTROOESOPHAGEAL REFLUX DISEASE
     Route: 048
     Dates: start: 19950101, end: 20091101
  2. GAVISCON [Concomitant]
  3. CALCIUM CARBONATE [Concomitant]

REACTIONS (3)
  - PAIN IN EXTREMITY [None]
  - WEIGHT DECREASED [None]
  - APHAGIA [None]
